FAERS Safety Report 7716157-0 (Version None)
Quarter: 2011Q3

REPORT INFORMATION
  Report Type: 
  Country: None (occurrence: None)
  Receive Date: 20110829
  Receipt Date: 20110817
  Transmission Date: 20111222
  Serious: Yes (Other)
  Sender: FDA-Public Use
  Company Number: BE-ELI_LILLY_AND_COMPANY-BE201105004044

PATIENT
  Sex: Male
  Weight: 90 kg

DRUGS (5)
  1. CYMBALTA [Suspect]
     Indication: DEPRESSION
     Dosage: UNK, UNKNOWN
     Route: 048
     Dates: start: 20110101, end: 20110201
  2. SERENASE                           /00273201/ [Concomitant]
  3. ZESTORETIC [Concomitant]
  4. LESCOL [Concomitant]
  5. ASAFLOW [Concomitant]

REACTIONS (1)
  - PARKINSON'S DISEASE [None]
